FAERS Safety Report 17225169 (Version 1)
Quarter: 2020Q1

REPORT INFORMATION
  Report Type: Spontaneous
  Country: NL (occurrence: NL)
  Receive Date: 20200102
  Receipt Date: 20200102
  Transmission Date: 20200409
  Serious: Yes (Other)
  Sender: FDA-Public Use
  Company Number: NL-MYLANLABS-2019M1132229

PATIENT
  Age: 68 Year
  Sex: Female

DRUGS (1)
  1. ALENDRONINEZUUR [Suspect]
     Active Substance: ALENDRONIC ACID
     Indication: OSTEOPOROSIS
     Dosage: 1XPER WEEK 1
     Route: 048
     Dates: start: 201504, end: 201904

REACTIONS (1)
  - Gastrooesophageal cancer [Unknown]

NARRATIVE: CASE EVENT DATE: 201906
